FAERS Safety Report 6072404-5 (Version None)
Quarter: 2009Q1

REPORT INFORMATION
  Report Type: 
  Country: None (occurrence: None)
  Receive Date: 20090210
  Receipt Date: 20090203
  Transmission Date: 20090719
  Serious: Yes (Hospitalization, Other)
  Sender: FDA-Public Use
  Company Number: DE-ABBOTT-09P-062-0501259-00

PATIENT
  Sex: Female
  Weight: 45 kg

DRUGS (6)
  1. HUMIRA [Suspect]
     Indication: RHEUMATOID ARTHRITIS
     Route: 058
     Dates: start: 20080728
  2. METHOTREXATE [Concomitant]
     Indication: DRUG USE FOR UNKNOWN INDICATION
  3. GLUCOCORTICOIDS [Concomitant]
     Indication: DRUG USE FOR UNKNOWN INDICATION
  4. ANALGESICS [Concomitant]
     Indication: DRUG USE FOR UNKNOWN INDICATION
  5. NSAID'S [Concomitant]
     Indication: DRUG USE FOR UNKNOWN INDICATION
  6. COXIBS [Concomitant]
     Indication: DRUG USE FOR UNKNOWN INDICATION

REACTIONS (2)
  - HEPATIC CYST [None]
  - REMOVAL OF INTERNAL FIXATION [None]
